FAERS Safety Report 4564878-3 (Version None)
Quarter: 2005Q1

REPORT INFORMATION
  Report Type: 
  Country: None (occurrence: None)
  Receive Date: 20050128
  Receipt Date: 20050125
  Transmission Date: 20050727
  Serious: Yes (Disabling)
  Sender: FDA-Public Use
  Company Number: US-MERCK-0501USA03898

PATIENT
  Age: 75 Year
  Sex: Female

DRUGS (8)
  1. VYTORIN [Suspect]
     Indication: BLOOD CHOLESTEROL INCREASED
     Route: 048
     Dates: start: 20040901, end: 20041201
  2. IMDUR [Concomitant]
     Route: 065
  3. ATENOLOL [Concomitant]
     Route: 065
  4. GLUCOTROL XL [Concomitant]
     Route: 065
  5. FOLIC ACID [Concomitant]
     Route: 065
  6. CYANOCOBALAMIN [Concomitant]
     Route: 065
  7. LASIX [Concomitant]
     Route: 065
  8. STATIN (UNSPECIFIED) [Suspect]
     Route: 065

REACTIONS (4)
  - ARTERIAL DISORDER [None]
  - BLOOD CREATININE INCREASED [None]
  - PAIN IN EXTREMITY [None]
  - RENAL DISORDER [None]
